FAERS Safety Report 7619522-5 (Version None)
Quarter: 2011Q3

REPORT INFORMATION
  Report Type: 
  Country: None (occurrence: None)
  Receive Date: 20110719
  Receipt Date: 20110705
  Transmission Date: 20111222
  Serious: Yes (Life-Threatening, Hospitalization)
  Sender: FDA-Public Use
  Company Number: US-JNJFOC-20110702800

PATIENT
  Age: 44 Year
  Sex: Male

DRUGS (19)
  1. RALTEGRAVIR [Suspect]
     Indication: HIV INFECTION
     Route: 048
     Dates: start: 20060518, end: 20080802
  2. LORATADINE [Concomitant]
     Dates: start: 20060601
  3. NYSTATIN [Concomitant]
     Dates: start: 20060415
  4. SALMETEROL XINAFOATE [Concomitant]
     Dates: start: 20040615
  5. SUSTIVA [Suspect]
     Indication: HIV INFECTION
     Route: 048
     Dates: start: 20060518, end: 20070723
  6. FAMCICLOVIR [Concomitant]
     Dates: start: 20020701
  7. LISINOPRIL [Concomitant]
     Dates: start: 20070709, end: 20071011
  8. DARUNAVIR ETHANOLATE [Suspect]
     Indication: HIV INFECTION
     Route: 048
     Dates: start: 20060518, end: 20080802
  9. ATAZANAVIR [Suspect]
     Indication: HIV INFECTION
     Route: 048
     Dates: start: 20060518, end: 20080802
  10. TRUVADA [Suspect]
     Indication: HIV INFECTION
     Route: 048
     Dates: start: 20060518, end: 20071014
  11. NORVIR [Suspect]
     Indication: HIV INFECTION
     Route: 048
     Dates: start: 20060518, end: 20080802
  12. ALBUTEROL SULFATE AUTOHALER [Concomitant]
     Dates: start: 19920701
  13. AZITHROMYCIN [Concomitant]
     Dates: start: 20060518
  14. GLIPIZIDE [Concomitant]
     Dates: start: 20040715, end: 20071011
  15. SEPTRA [Concomitant]
     Dates: start: 20060515
  16. BISOPROLOL [Concomitant]
     Dates: start: 20051015, end: 20071011
  17. FLUNISOLIDE [Concomitant]
     Dates: start: 20050615
  18. EPIVIR [Suspect]
     Indication: HIV INFECTION
     Route: 048
     Dates: start: 20071015, end: 20080802
  19. QVAR 40 [Concomitant]
     Dates: start: 20010701

REACTIONS (5)
  - CEREBROVASCULAR ACCIDENT [None]
  - ATRIAL FIBRILLATION [None]
  - DIABETES MELLITUS INADEQUATE CONTROL [None]
  - RENAL FAILURE ACUTE [None]
  - HYPERGLYCAEMIA [None]
